FAERS Safety Report 4658359-6 (Version None)
Quarter: 2005Q2

REPORT INFORMATION
  Report Type: 
  Country: None (occurrence: None)
  Receive Date: 20050511
  Receipt Date: 20050429
  Transmission Date: 20051028
  Serious: Yes (Other)
  Sender: FDA-Public Use
  Company Number: PT-BRISTOL-MYERS SQUIBB COMPANY-12956181

PATIENT
  Age: 41 Year
  Sex: Male

DRUGS (7)
  1. GLUCOPHAGE [Suspect]
     Indication: DIABETES MELLITUS
     Route: 048
     Dates: start: 20040101, end: 20050201
  2. SALMETEROL [Suspect]
     Indication: ASTHMA
     Route: 055
     Dates: start: 20040101, end: 20050201
  3. VENLAFAXINE HCL [Concomitant]
     Indication: ANXIETY
     Route: 048
     Dates: end: 20040101
  4. ALPRAZOLAM [Concomitant]
     Indication: ANXIETY
     Route: 048
     Dates: end: 20040101
  5. FLUTICASONE PROPIONATE [Concomitant]
     Indication: ASTHMA
     Route: 055
     Dates: start: 20000101, end: 20050201
  6. AMINOPHYLLINE [Concomitant]
     Indication: ASTHMA
     Route: 048
     Dates: start: 20000101, end: 20050201
  7. BEZAFIBRATE [Concomitant]
     Indication: HYPERCHOLESTEROLAEMIA
     Route: 048
     Dates: start: 20000101, end: 20050201

REACTIONS (1)
  - GENERALISED ERYTHEMA [None]
